FAERS Safety Report 15787560 (Version 1)
Quarter: 2019Q1

REPORT INFORMATION
  Report Type: Spontaneous
  Country: US (occurrence: US)
  Receive Date: 20190103
  Receipt Date: 20190103
  Transmission Date: 20190417
  Serious: Yes (Life-Threatening, Other)
  Sender: FDA-Public Use
  Company Number: US-PFIZER INC-2018534351

PATIENT
  Age: 55 Year
  Sex: Female

DRUGS (2)
  1. THROMBIN-JMI [Suspect]
     Active Substance: THROMBIN
     Indication: HAEMOSTASIS
     Dosage: UNK
     Route: 061
  2. FIBRIN SEALANT NOS [Suspect]
     Active Substance: FIBRINOGEN HUMAN\THROMBIN HUMAN
     Indication: HAEMOSTASIS
     Dosage: UNK

REACTIONS (8)
  - Wound infection [Unknown]
  - Disseminated intravascular coagulation [Recovered/Resolved]
  - Haemorrhage [Recovered/Resolved]
  - Activated partial thromboplastin time prolonged [Recovered/Resolved]
  - Factor V inhibition [Recovered/Resolved]
  - Fibrin D dimer increased [Recovered/Resolved]
  - Prothrombin time prolonged [Recovered/Resolved]
  - Coagulation factor V level decreased [Recovered/Resolved]
